FAERS Safety Report 5379246-4 (Version None)
Quarter: 2007Q3

REPORT INFORMATION
  Report Type: 
  Country: None (occurrence: None)
  Receive Date: 20070705
  Receipt Date: 20070627
  Transmission Date: 20080115
  Serious: Yes (Other)
  Sender: FDA-Public Use
  Company Number: DE-ROXANE LABORATORIES, INC-2007-BP-16370RO

PATIENT
  Age: 38 Year
  Sex: Female

DRUGS (8)
  1. LITHIUM CARBONATE [Suspect]
     Indication: PROPHYLAXIS
     Route: 048
     Dates: start: 20040701, end: 20060201
  2. FLUVASTATIN [Concomitant]
     Indication: HYPERLIPIDAEMIA
     Dates: start: 20060201, end: 20060301
  3. NICOTINIC ACID [Concomitant]
     Indication: HYPERLIPIDAEMIA
     Dates: start: 20060201, end: 20060301
  4. RISPERIDONE [Concomitant]
     Indication: MAJOR DEPRESSION
     Dates: start: 20040601, end: 20040701
  5. LORAZEPAM [Concomitant]
     Indication: MAJOR DEPRESSION
     Dates: start: 20040601, end: 20040701
  6. PIPAMPERONE [Concomitant]
     Indication: MAJOR DEPRESSION
     Dates: start: 20040601, end: 20040701
  7. ZOPICLON [Concomitant]
     Indication: MAJOR DEPRESSION
     Dates: start: 20040601, end: 20040701
  8. BIPERIDEN HYDROCHLORIDE TAB [Concomitant]
     Indication: EXTRAPYRAMIDAL DISORDER

REACTIONS (4)
  - BLOOD CHOLESTEROL INCREASED [None]
  - BLOOD TRIGLYCERIDES INCREASED [None]
  - HYPERLIPIDAEMIA [None]
  - LIPASE INCREASED [None]
